FAERS Safety Report 8524155-2 (Version None)
Quarter: 2012Q3

REPORT INFORMATION
  Report Type: 
  Country: None (occurrence: None)
  Receive Date: 20120720
  Receipt Date: 20120713
  Transmission Date: 20120928
  Serious: Yes (Death, Other)
  Sender: FDA-Public Use
  Company Number: US-PFIZER INC-2012113153

PATIENT
  Sex: Male

DRUGS (3)
  1. INLYTA [Suspect]
  2. INLYTA [Suspect]
     Indication: BRONCHIAL CARCINOMA
     Dosage: 5 MG, 2X/DAY (ONE TABLET TWICE A DAY)
     Route: 048
     Dates: start: 20120505
  3. INLYTA [Suspect]
     Indication: LUNG NEOPLASM MALIGNANT

REACTIONS (7)
  - DEATH [None]
  - FALL [None]
  - DECREASED APPETITE [None]
  - HEAD INJURY [None]
  - CONTUSION [None]
  - SOMNOLENCE [None]
  - DYSARTHRIA [None]
